FAERS Safety Report 15848623 (Version 4)
Quarter: 2019Q4

REPORT INFORMATION
  Report Type: Spontaneous
  Country: US (occurrence: US)
  Receive Date: 20190121
  Receipt Date: 20191017
  Transmission Date: 20200122
  Serious: Yes (Other)
  Sender: FDA-Public Use
  Company Number: US-PFIZER INC-2019027886

PATIENT
  Age: 63 Year
  Sex: Female
  Weight: 108.84 kg

DRUGS (2)
  1. XELJANZ XR [Suspect]
     Active Substance: TOFACITINIB CITRATE
     Indication: ARTHRITIS
  2. XELJANZ XR [Suspect]
     Active Substance: TOFACITINIB CITRATE
     Indication: RHEUMATOID ARTHRITIS
     Dosage: 11 MG, 1X/DAY (11MG ONCE PER DAY BY MOUTH IN EVENINGS)
     Route: 048

REACTIONS (5)
  - Fall [Unknown]
  - Skin lesion [Recovering/Resolving]
  - Cardiac failure [Not Recovered/Not Resolved]
  - Hypersensitivity [Recovering/Resolving]
  - Body height decreased [Unknown]

NARRATIVE: CASE EVENT DATE: 2019
